FAERS Safety Report 6486530-X (Version None)
Quarter: 2009Q4

REPORT INFORMATION
  Report Type: 
  Country: None (occurrence: None)
  Receive Date: 20091210
  Receipt Date: 20091201
  Transmission Date: 20100525
  Serious: Yes (Hospitalization, Other)
  Sender: FDA-Public Use
  Company Number: DE-JNJFOC-20091007178

PATIENT
  Sex: Male
  Weight: 70 kg

DRUGS (2)
  1. RISPERDAL CONSTA [Suspect]
     Indication: SCHIZOPHRENIA, PARANOID TYPE
     Dosage: SINCE A LONG TIME
     Route: 030
  2. INFLUENZA VACCINATION [Interacting]
     Indication: IMMUNISATION
     Route: 065

REACTIONS (3)
  - DELUSION [None]
  - DRUG INTERACTION [None]
  - MENTAL DISORDER [None]
